FAERS Safety Report 8361351-1 (Version None)
Quarter: 2012Q2

REPORT INFORMATION
  Report Type: 
  Country: None (occurrence: None)
  Receive Date: 20120515
  Receipt Date: 20120514
  Transmission Date: 20120825
  Serious: Yes (Other)
  Sender: FDA-Public Use
  Company Number: US-BAYER-2012-015180

PATIENT
  Age: 64 Year
  Sex: Female
  Weight: 58.05 kg

DRUGS (3)
  1. BETASERON [Suspect]
     Indication: MULTIPLE SCLEROSIS
     Dosage: 0.3 MG, QOD
     Route: 058
     Dates: start: 19940201, end: 20120101
  2. PREMARIN [Concomitant]
     Indication: HORMONE REPLACEMENT THERAPY
     Dosage: 0.3 MG, QD
     Dates: start: 19900101
  3. AMANTADINE HCL [Concomitant]
     Indication: FATIGUE
     Dosage: 100 MG, QD
     Dates: start: 19910101

REACTIONS (2)
  - HEPATIC LESION [None]
  - ADENOCARCINOMA [None]
